FAERS Safety Report 25746270 (Version 1)
Quarter: 2025Q3

REPORT INFORMATION
  Report Type: Spontaneous
  Country: US (occurrence: US)
  Receive Date: 20250901
  Receipt Date: 20250901
  Transmission Date: 20251021
  Serious: No
  Sender: pharmaAND
  Company Number: US-Pharmaand-2024000957

PATIENT
  Age: 41 Year
  Sex: Female

DRUGS (4)
  1. PEGASYS [Suspect]
     Active Substance: PEGINTERFERON ALFA-2A
     Indication: Myeloproliferative neoplasm
     Dosage: 180 UG WEEKLY
  2. LOVENOX [Suspect]
     Active Substance: ENOXAPARIN SODIUM
  3. ASPIRIN [Concomitant]
     Active Substance: ASPIRIN
  4. HYDROXYUREA [Concomitant]
     Active Substance: HYDROXYUREA

REACTIONS (4)
  - Off label use [Recovered/Resolved]
  - Myeloproliferative neoplasm [Recovered/Resolved]
  - Essential thrombocythaemia [Recovered/Resolved]
  - Maternal exposure timing unspecified [Unknown]
